FAERS Safety Report 4433599-X (Version None)
Quarter: 2004Q3

REPORT INFORMATION
  Report Type: 
  Country: None (occurrence: None)
  Receive Date: 20040825
  Receipt Date: 20040825
  Transmission Date: 20050211
  Serious: Yes (Other)
  Sender: FDA-Public Use
  Company Number: None

PATIENT
  Age: 20 Year
  Sex: Male
  Weight: 68.0396 kg

DRUGS (1)
  1. ZOLOFT [Suspect]
     Indication: SOCIAL PHOBIA
     Dosage: ONCE A DAY
     Dates: start: 20031201

REACTIONS (2)
  - SELF MUTILATION [None]
  - SUICIDAL IDEATION [None]
